FAERS Safety Report 23600673 (Version 5)
Quarter: 2025Q3

REPORT INFORMATION
  Report Type: Report from Study
  Country: EU (occurrence: EU)
  Receive Date: 20240306
  Receipt Date: 20250803
  Transmission Date: 20251020
  Serious: Yes (Hospitalization, Other)
  Sender: ALEXION PHARMACEUTICALS
  Company Number: 2024A055081

PATIENT
  Age: 66 Year
  Sex: Female
  Weight: 80.4 kg

DRUGS (101)
  1. ENHERTU [Suspect]
     Active Substance: FAM-TRASTUZUMAB DERUXTECAN-NXKI
     Indication: Breast cancer metastatic
     Dates: start: 20200814, end: 20201015
  2. ENHERTU [Suspect]
     Active Substance: FAM-TRASTUZUMAB DERUXTECAN-NXKI
     Indication: Breast cancer metastatic
  3. XGEVA [Suspect]
     Active Substance: DENOSUMAB
     Indication: Breast cancer metastatic
     Dosage: 120 MILLIGRAM, Q4W
     Dates: start: 20170202
  4. XGEVA [Suspect]
     Active Substance: DENOSUMAB
     Indication: Breast cancer metastatic
     Dosage: 120 MILLIGRAM, Q4W
     Dates: start: 20201230, end: 20210210
  5. XGEVA [Suspect]
     Active Substance: DENOSUMAB
     Indication: HER2 positive breast cancer
     Dosage: 120 MILLIGRAM, Q4W
     Dates: start: 20210210
  6. PERTUZUMAB [Suspect]
     Active Substance: PERTUZUMAB
     Indication: Breast cancer metastatic
     Dosage: 840 MG, QD
     Dates: start: 20170224, end: 20170224
  7. PERTUZUMAB [Suspect]
     Active Substance: PERTUZUMAB
     Dosage: 840 MG, QD
     Dates: start: 20200422, end: 20200615
  8. PERTUZUMAB [Suspect]
     Active Substance: PERTUZUMAB
     Dosage: 840 MG, QD
     Dates: start: 20210317, end: 20210428
  9. PERTUZUMAB [Suspect]
     Active Substance: PERTUZUMAB
     Dosage: 420 MILLIGRAM, QD
     Dates: start: 20170317, end: 20190213
  10. ACETAMINOPHEN [Concomitant]
     Active Substance: ACETAMINOPHEN
     Indication: Product used for unknown indication
     Route: 065
  11. ACETAMINOPHEN [Concomitant]
     Active Substance: ACETAMINOPHEN
     Indication: Pseudomonal sepsis
     Route: 065
     Dates: start: 20200506, end: 20210622
  12. FASLODEX [Suspect]
     Active Substance: FULVESTRANT
     Indication: Breast cancer metastatic
     Dates: start: 20171002, end: 20171115
  13. FASLODEX [Suspect]
     Active Substance: FULVESTRANT
     Dosage: 500 MILLIGRAM, QMO (MOST RECENT DOSE PRIOR TO THE EVENT PORT A CATH INFECTION: 16/NOV/2017)
     Dates: start: 20171116, end: 20191001
  14. NAVELBINE [Suspect]
     Active Substance: VINORELBINE TARTRATE
     Indication: Breast cancer metastatic
     Dosage: 45 MILLIGRAM, Q3WK
     Dates: start: 20200722, end: 20200722
  15. NAVELBINE [Suspect]
     Active Substance: VINORELBINE TARTRATE
     Indication: Breast cancer metastatic
     Dosage: 45 MILLIGRAM, Q3WK
     Dates: start: 20200422, end: 20200722
  16. KADCYLA [Suspect]
     Active Substance: ADO-TRASTUZUMAB EMTANSINE
     Indication: HER2 positive breast cancer
     Dosage: 190 MILLIGRAM, Q3W
     Dates: start: 20170224, end: 20170317
  17. KADCYLA [Suspect]
     Active Substance: ADO-TRASTUZUMAB EMTANSINE
     Indication: Breast cancer metastatic
     Dates: start: 20170519, end: 20170519
  18. KADCYLA [Suspect]
     Active Substance: ADO-TRASTUZUMAB EMTANSINE
     Dosage: 270 MILLIGRAM, Q3WK
     Dates: start: 20190306, end: 20190909
  19. KADCYLA [Suspect]
     Active Substance: ADO-TRASTUZUMAB EMTANSINE
     Dosage: 810 MILLIGRAM, QW
     Dates: start: 20190603, end: 20190909
  20. TAXOTERE [Suspect]
     Active Substance: DOCETAXEL
     Indication: Breast cancer metastatic
     Route: 065
     Dates: start: 20170410, end: 20170427
  21. TAXOTERE [Suspect]
     Active Substance: DOCETAXEL
     Indication: HER2 positive breast cancer
     Dates: start: 20170519, end: 20170519
  22. TAXOTERE [Suspect]
     Active Substance: DOCETAXEL
     Dates: start: 20170224, end: 20170317
  23. TAXOTERE [Suspect]
     Active Substance: DOCETAXEL
     Dosage: 180 MILLIGRAM, TID
     Dates: start: 20170609, end: 20170630
  24. TAXOTERE [Suspect]
     Active Substance: DOCETAXEL
     Dosage: 134.25 MILLIGRAM, Q3WK
     Dates: start: 20210317, end: 20210428
  25. TAXOTERE [Suspect]
     Active Substance: DOCETAXEL
     Route: 065
     Dates: start: 20170519, end: 20170519
  26. TAXOTERE [Suspect]
     Active Substance: DOCETAXEL
     Dates: start: 20170609, end: 20170630
  27. TAXOTERE [Suspect]
     Active Substance: DOCETAXEL
     Dates: start: 20210317, end: 20210428
  28. TAXOTERE [Suspect]
     Active Substance: DOCETAXEL
     Dates: start: 20170224, end: 20210428
  29. TAXOTERE [Suspect]
     Active Substance: DOCETAXEL
     Dates: start: 20210317, end: 20210428
  30. TAXOTERE [Suspect]
     Active Substance: DOCETAXEL
     Dosage: 462 MILLIGRAM, Q3W
     Dates: start: 20170810, end: 20190213
  31. TAXOTERE [Suspect]
     Active Substance: DOCETAXEL
     Dosage: 414 MILLIGRAM, Q3W
     Dates: start: 20170609, end: 20170630
  32. TAXOTERE [Suspect]
     Active Substance: DOCETAXEL
     Dosage: 624 MILLIGRAM, Q3W
     Dates: start: 20170720, end: 20170720
  33. TAXOTERE [Suspect]
     Active Substance: DOCETAXEL
     Dates: start: 20170410, end: 20170427
  34. TAXOTERE [Suspect]
     Active Substance: DOCETAXEL
     Dosage: 500 MILLIGRAM, Q3W
     Dates: start: 20201230, end: 20210210
  35. TAXOTERE [Suspect]
     Active Substance: DOCETAXEL
     Dosage: 408 MILLIGRAM, Q3W
     Dates: start: 20210317, end: 20210428
  36. TAXOTERE [Suspect]
     Active Substance: DOCETAXEL
     Dosage: 540 MILLIGRAM, Q3W
     Dates: start: 20200422, end: 20200624
  37. TAXOTERE [Suspect]
     Active Substance: DOCETAXEL
     Dosage: 432 MILLIGRAM, Q3W
     Dates: start: 20170519, end: 20170519
  38. TAXOTERE [Suspect]
     Active Substance: DOCETAXEL
     Dosage: 624 MILLIGRAM, Q3W
     Dates: start: 20170224, end: 20170224
  39. TAXOTERE [Suspect]
     Active Substance: DOCETAXEL
     Route: 065
  40. TAXOTERE [Suspect]
     Active Substance: DOCETAXEL
     Dosage: 468 MILLIGRAM, Q3W
     Dates: start: 20170317, end: 20170317
  41. TAXOTERE [Suspect]
     Active Substance: DOCETAXEL
     Dosage: 468 MILLIGRAM, Q3W
     Dates: start: 20170720, end: 20170720
  42. TAXOTERE [Suspect]
     Active Substance: DOCETAXEL
     Dosage: 462 MILLIGRAM, Q3W
     Dates: start: 20190213
  43. TAXOTERE [Suspect]
     Active Substance: DOCETAXEL
  44. TAXOTERE [Suspect]
     Active Substance: DOCETAXEL
     Dosage: 190 MILLIGRAM, Q3W
     Dates: start: 20170224, end: 20170317
  45. TAXOTERE [Suspect]
     Active Substance: DOCETAXEL
     Dosage: 180 MILLIGRAM, Q3W
  46. TAXOTERE [Suspect]
     Active Substance: DOCETAXEL
     Dosage: 134.25 MILLIGRAM, Q3W
     Route: 065
  47. TAXOTERE [Suspect]
     Active Substance: DOCETAXEL
     Route: 065
  48. ADRIACIN [Concomitant]
     Active Substance: DOXORUBICIN HYDROCHLORIDE
     Indication: Breast cancer metastatic
     Dosage: 104.4 MILLIGRAM, QD
     Route: 065
     Dates: start: 20210608, end: 20210608
  49. DOXIL [Suspect]
     Active Substance: DOXORUBICIN HYDROCHLORIDE
     Indication: Breast cancer metastatic
     Dates: start: 20210608, end: 20210608
  50. CAPECITABINE [Suspect]
     Active Substance: CAPECITABINE
     Dosage: 3500 MILLIGRAM, QD (MOST RECENT DOSE PRIOR TO THE EVENT PORT A CATH INFECTION: 08/JAN/2020)
     Dates: start: 20191002, end: 20200107
  51. CAPECITABINE [Suspect]
     Active Substance: CAPECITABINE
     Dosage: 3000 MILLIGRAM, QD
     Dates: start: 20200108, end: 20200421
  52. CAPECITABINE [Suspect]
     Active Substance: CAPECITABINE
     Dosage: 2000 MILLIGRAM, QD (OTHER DAILY FOR 2 WEEKS THEN PAUSE FOR 1 WEEK)
     Dates: start: 20201230, end: 20210203
  53. HERCEPTIN [Suspect]
     Active Substance: TRASTUZUMAB
     Indication: Breast cancer metastatic
     Dosage: 624 MILLIGRAM Q3WK (MOST RECENT DOSE PRIOR TO THE EVENTS: 10/AUG/2017)
     Dates: start: 20170224, end: 20170224
  54. HERCEPTIN [Suspect]
     Active Substance: TRASTUZUMAB
     Dosage: 462 MILLIGRAM Q3WK
     Dates: start: 20170810, end: 20190213
  55. HERCEPTIN [Suspect]
     Active Substance: TRASTUZUMAB
     Dosage: 432 MILLIGRAM Q3WK
     Dates: start: 20170519, end: 20170519
  56. HERCEPTIN [Suspect]
     Active Substance: TRASTUZUMAB
     Dosage: 414 MILLIGRAM Q3WK
     Dates: start: 20170609, end: 20170630
  57. HERCEPTIN [Suspect]
     Active Substance: TRASTUZUMAB
     Dosage: 468 MILLIGRAM, QD
     Dates: start: 20170720, end: 20170720
  58. HERCEPTIN [Suspect]
     Active Substance: TRASTUZUMAB
     Dates: start: 20170410, end: 20170427
  59. HERCEPTIN [Suspect]
     Active Substance: TRASTUZUMAB
     Dosage: 468 MILLIGRAM Q3WK (MOST RECENT DOSE PRIOR TO THE EVENTS: 10/AUG/2017)
     Dates: start: 20170317, end: 20170317
  60. HERCEPTIN [Suspect]
     Active Substance: TRASTUZUMAB
     Dates: start: 20170720, end: 20170720
  61. HERCEPTIN [Suspect]
     Active Substance: TRASTUZUMAB
     Dosage: 540 MILLIGRAM Q3WK
     Dates: start: 20200422, end: 20200624
  62. HERCEPTIN [Suspect]
     Active Substance: TRASTUZUMAB
     Dosage: 560 MILLIGRAM Q3WK
     Dates: start: 20201230, end: 20210210
  63. BLEOMYCIN [Suspect]
     Active Substance: BLEOMYCIN SULFATE
     Indication: Breast cancer metastatic
     Dates: start: 20210105, end: 20210105
  64. BLEOMYCIN [Suspect]
     Active Substance: BLEOMYCIN SULFATE
     Dosage: 26.85 MILLIGRAM, QD DRUG WAS DISCONTINUED AS PLANNED NUMBER OF CYCLES COMPLETED)
     Dates: start: 20200519, end: 20200519
  65. TYKERB [Suspect]
     Active Substance: LAPATINIB DITOSYLATE
     Indication: Breast cancer metastatic
     Dosage: 1000 MILLIGRAM, QD
     Dates: start: 20200108, end: 20200421
  66. TYKERB [Suspect]
     Active Substance: LAPATINIB DITOSYLATE
     Dosage: 1250 MILLIGRAM, QD (MOST RECENT DOSE PRIOR TO THE EVENTLYMPH NODE METASTATIS AXILLA AND PORT A CATH: 08/JAN/2020)
     Dates: start: 20191002, end: 20200107
  67. TUCATINIB [Suspect]
     Active Substance: TUCATINIB
     Dates: start: 20201230, end: 20210210
  68. ACETAMINOPHEN [Concomitant]
     Active Substance: ACETAMINOPHEN
     Indication: Product used for unknown indication
  69. Ponveridol [Concomitant]
     Indication: Product used for unknown indication
  70. Ponveridol [Concomitant]
     Indication: Gastrointestinal disorder
  71. Ponveridol [Concomitant]
     Route: 065
     Dates: start: 20210618, end: 20210623
  72. POLYETHYLENE GLYCOL 3350\POTASSIUM CHLORIDE\SODIUM BICARBONATE\SODIUM [Concomitant]
     Active Substance: POLYETHYLENE GLYCOL 3350\POTASSIUM CHLORIDE\SODIUM BICARBONATE\SODIUM CHLORIDE
     Indication: Product used for unknown indication
  73. POLYETHYLENE GLYCOL 3350\POTASSIUM CHLORIDE\SODIUM BICARBONATE\SODIUM [Concomitant]
     Active Substance: POLYETHYLENE GLYCOL 3350\POTASSIUM CHLORIDE\SODIUM BICARBONATE\SODIUM CHLORIDE
     Dates: start: 20210608, end: 20210616
  74. POLYETHYLENE GLYCOL 3350\POTASSIUM CHLORIDE\SODIUM BICARBONATE\SODIUM [Concomitant]
     Active Substance: POLYETHYLENE GLYCOL 3350\POTASSIUM CHLORIDE\SODIUM BICARBONATE\SODIUM CHLORIDE
     Dates: start: 20170709, end: 20170709
  75. FUROSEMIDE [Concomitant]
     Active Substance: FUROSEMIDE
     Indication: Product used for unknown indication
     Dates: start: 20170810, end: 20171213
  76. HYDROMORPHONE HYDROCHLORIDE [Concomitant]
     Active Substance: HYDROMORPHONE HYDROCHLORIDE
     Indication: Product used for unknown indication
     Route: 065
     Dates: start: 20210611, end: 20210615
  77. LACTULOSE [Concomitant]
     Active Substance: LACTULOSE
     Indication: Product used for unknown indication
  78. LACTULOSE [Concomitant]
     Active Substance: LACTULOSE
  79. LACTULOSE [Concomitant]
     Active Substance: LACTULOSE
  80. LACTULOSE [Concomitant]
     Active Substance: LACTULOSE
     Route: 065
  81. LACTULOSE [Concomitant]
     Active Substance: LACTULOSE
     Route: 065
  82. BETAMETHASONE DIPROPIONATE [Concomitant]
     Active Substance: BETAMETHASONE DIPROPIONATE
     Indication: Eczema
  83. LORAZEPAM [Concomitant]
     Active Substance: LORAZEPAM
  84. TRAZODONE HYDROCHLORIDE [Concomitant]
     Active Substance: TRAZODONE HYDROCHLORIDE
     Indication: Product used for unknown indication
     Dates: start: 20190731, end: 20190910
  85. LIDOCAINE [Concomitant]
     Active Substance: LIDOCAINE
     Indication: Product used for unknown indication
  86. LIDOCAINE [Concomitant]
     Active Substance: LIDOCAINE
  87. LIDOCAINE [Concomitant]
     Active Substance: LIDOCAINE
     Route: 065
  88. LIDOCAINE [Concomitant]
     Active Substance: LIDOCAINE
     Route: 065
  89. HYALURONATE SODIUM [Concomitant]
     Active Substance: HYALURONATE SODIUM
     Indication: Product used for unknown indication
  90. HYALURONATE SODIUM [Concomitant]
     Active Substance: HYALURONATE SODIUM
  91. HYALURONATE SODIUM [Concomitant]
     Active Substance: HYALURONATE SODIUM
     Route: 065
  92. HYALURONATE SODIUM [Concomitant]
     Active Substance: HYALURONATE SODIUM
     Route: 065
  93. ONDANSETRON HYDROCHLORIDE [Concomitant]
     Active Substance: ONDANSETRON HYDROCHLORIDE
     Indication: Gastrointestinal disorder
     Dates: start: 20170329, end: 20170809
  94. ONDANSETRON HYDROCHLORIDE [Concomitant]
     Active Substance: ONDANSETRON HYDROCHLORIDE
     Route: 065
  95. ONDANSETRON HYDROCHLORIDE [Concomitant]
     Active Substance: ONDANSETRON HYDROCHLORIDE
     Route: 065
     Dates: start: 20210611, end: 20210616
  96. AMPHOTERICIN B [Concomitant]
     Active Substance: AMPHOTERICIN B
     Indication: Product used for unknown indication
  97. AMPHOTERICIN B [Concomitant]
     Active Substance: AMPHOTERICIN B
  98. AMPHOTERICIN B [Concomitant]
     Active Substance: AMPHOTERICIN B
     Route: 065
  99. AMPHOTERICIN B [Concomitant]
     Active Substance: AMPHOTERICIN B
     Route: 065
  100. BUTYLSCOPOLAMINE BROMIDE [Concomitant]
     Active Substance: BUTYLSCOPOLAMINE BROMIDE
     Indication: Gastrointestinal disorder
     Route: 065
     Dates: start: 20210618, end: 20210618
  101. ACETAMINOPHEN [Concomitant]
     Active Substance: ACETAMINOPHEN
     Indication: Pseudomonal sepsis
     Route: 065
     Dates: start: 20200610, end: 20200616

REACTIONS (26)
  - Brain oedema [Not Recovered/Not Resolved]
  - Streptococcal sepsis [Recovered/Resolved]
  - Vascular device infection [Recovered/Resolved]
  - Metastases to lymph nodes [Not Recovered/Not Resolved]
  - Metastases to central nervous system [Not Recovered/Not Resolved]
  - Candida infection [Recovered/Resolved]
  - Fatigue [Recovered/Resolved]
  - Pleural effusion [Recovered/Resolved]
  - C-reactive protein increased [Not Recovered/Not Resolved]
  - Restlessness [Not Recovered/Not Resolved]
  - Off label use [Unknown]
  - Nail bed inflammation [Not Recovered/Not Resolved]
  - Paronychia [Recovered/Resolved]
  - Nasal mucosal disorder [Recovered/Resolved]
  - Eczema [Not Recovered/Not Resolved]
  - Skin fissures [Recovered/Resolved]
  - Nausea [Recovered/Resolved]
  - Vomiting [Recovered/Resolved]
  - Varicose vein [Not Recovered/Not Resolved]
  - Back pain [Recovered/Resolved]
  - Sepsis [Recovered/Resolved]
  - Metastases to central nervous system [Not Recovered/Not Resolved]
  - C-reactive protein increased [Not Recovered/Not Resolved]
  - Skin fissures [Recovered/Resolved]
  - Restlessness [Not Recovered/Not Resolved]
  - Nail bed inflammation [Not Recovered/Not Resolved]

NARRATIVE: CASE EVENT DATE: 20170921
